FAERS Safety Report 12195516 (Version 1)
Quarter: 2016Q1

REPORT INFORMATION
  Report Type: Spontaneous
  Country: FR (occurrence: FR)
  Receive Date: 20160321
  Receipt Date: 20160321
  Transmission Date: 20160526
  Serious: Yes (Hospitalization)
  Sender: FDA-Public Use
  Company Number: FR-PFIZER INC-2016158536

PATIENT
  Age: 93 Year
  Sex: Male

DRUGS (10)
  1. NATISPRAY [Suspect]
     Active Substance: NITROGLYCERIN
     Indication: MYOCARDIAL ISCHAEMIA
     Dosage: UNK
  2. INNOVAIR [Concomitant]
     Active Substance: BECLOMETHASONE DIPROPIONATE\FORMOTEROL
  3. CARBOCISTEINE [Concomitant]
     Active Substance: CARBOCYSTEINE
     Dosage: UNK
     Dates: start: 20160209
  4. NICORANDIL [Suspect]
     Active Substance: NICORANDIL
     Dosage: 20 MG, 2X/DAY
     Route: 048
  5. BROMAZEPAM [Suspect]
     Active Substance: BROMAZEPAM
     Indication: ANXIETY
     Dosage: 1.5 MG, DAILY
     Route: 048
  6. SPIRAMYCINE [Concomitant]
     Active Substance: SPIRAMYCIN
     Dosage: UNK
     Dates: start: 20160209
  7. TRANSILANE [Suspect]
     Active Substance: POTASSIUM BICARBONATE\PSYLLIUM HUSK
     Dosage: UNK
     Route: 048
     Dates: end: 201602
  8. CELIPROLOL HCL [Suspect]
     Active Substance: CELIPROLOL
     Indication: MYOCARDIAL ISCHAEMIA
     Dosage: 100 MG, DAILY
     Route: 048
  9. SERTRALINE HCL [Suspect]
     Active Substance: SERTRALINE HYDROCHLORIDE
     Indication: DEPRESSION
     Dosage: UNK
     Route: 048
     Dates: end: 20160219
  10. KARDEGIC [Suspect]
     Active Substance: ASPIRIN LYSINE
     Indication: MYOCARDIAL ISCHAEMIA
     Dosage: 75 MG, UNK
     Route: 048

REACTIONS (1)
  - Interstitial lung disease [Recovering/Resolving]

NARRATIVE: CASE EVENT DATE: 20160215
